FAERS Safety Report 17804117 (Version 3)
Quarter: 2021Q3

REPORT INFORMATION
  Report Type: Report from Study
  Country: FR (occurrence: FR)
  Receive Date: 20200519
  Receipt Date: 20210909
  Transmission Date: 20211014
  Serious: Yes (Hospitalization)
  Sender: FDA-Public Use
  Company Number: FR-GLAXOSMITHKLINE-FR2020GSK083567

PATIENT
  Age: 57 Year
  Sex: Female
  Weight: 58 kg

DRUGS (11)
  1. NIRAPARIB [Suspect]
     Active Substance: NIRAPARIB
     Indication: OVARIAN CANCER
     Dosage: 200 MG
     Dates: start: 20200408, end: 20200514
  2. DOSTARLIMAB [Suspect]
     Active Substance: DOSTARLIMAB
     Dosage: 1000 MG
     Dates: start: 20200408, end: 20200408
  3. BEVACIZUMAB. [Suspect]
     Active Substance: BEVACIZUMAB
     Indication: OVARIAN CANCER
     Dosage: 850 MG
     Route: 042
     Dates: start: 20191017, end: 20191017
  4. CARBOPLATIN. [Suspect]
     Active Substance: CARBOPLATIN
     Indication: OVARIAN CANCER
     Dosage: 680 MG
     Route: 042
     Dates: start: 20191017, end: 20191017
  5. PACLITAXEL. [Suspect]
     Active Substance: PACLITAXEL
     Dosage: 228 MG
     Route: 042
     Dates: start: 20200206, end: 20200206
  6. BEVACIZUMAB. [Suspect]
     Active Substance: BEVACIZUMAB
     Dosage: 875 MG
     Route: 042
     Dates: start: 20200408, end: 20200408
  7. PACLITAXEL. [Suspect]
     Active Substance: PACLITAXEL
     Indication: OVARIAN CANCER
     Dosage: 288 MG
     Route: 042
     Dates: start: 20191017, end: 20191017
  8. CISPLATIN. [Concomitant]
     Active Substance: CISPLATIN
     Indication: OVARIAN CANCER
     Route: 042
  9. DOCETAXEL. [Concomitant]
     Active Substance: DOCETAXEL
     Indication: OVARIAN CANCER
     Route: 042
  10. DOSTARLIMAB [Suspect]
     Active Substance: DOSTARLIMAB
     Indication: OVARIAN CANCER
     Dosage: 500 MG
     Dates: start: 20191107, end: 20191107
  11. CARBOPLATIN. [Suspect]
     Active Substance: CARBOPLATIN
     Dosage: 660 MG
     Route: 042
     Dates: start: 20200206, end: 20200206

REACTIONS (1)
  - Vena cava thrombosis [Recovered/Resolved]

NARRATIVE: CASE EVENT DATE: 20200514
